FAERS Safety Report 10252106 (Version 1)
Quarter: 2014Q2

REPORT INFORMATION
  Report Type: Spontaneous
  Country: BE (occurrence: BE)
  Receive Date: 20140623
  Receipt Date: 20140623
  Transmission Date: 20141212
  Serious: Yes (Hospitalization)
  Sender: FDA-Public Use
  Company Number: BE-JNJFOC-20140606731

PATIENT
  Age: 72 Year
  Sex: Female
  Weight: 65 kg

DRUGS (9)
  1. HALDOL [Suspect]
     Indication: PSYCHOTIC DISORDER
     Dosage: TABLET TAKEN EVERY DAY AT 8 AM, 12 NOON AND 6 PM.
     Route: 048
     Dates: start: 20130802
  2. ISOTEN [Concomitant]
     Indication: HYPERTENSION
     Dosage: ONE 2.5 MG TABLET TAKEN EVERY MORNING
     Route: 048
  3. ZESTORETIC [Concomitant]
     Indication: HYPERTENSION
     Dosage: ONE TABLET TAKEN EVERY MORNING
     Route: 048
  4. ZANTAC [Concomitant]
     Indication: GASTROOESOPHAGEAL REFLUX DISEASE
     Dosage: ONE TABLET TAKEN EVERY MORNING
     Route: 048
  5. APOCARD RETARD [Concomitant]
     Indication: ATRIAL FIBRILLATION
     Dosage: ONE 150 MG TABLET TAKEN EVERY MORNING
     Route: 048
  6. SEROQUEL XR [Concomitant]
     Indication: PSYCHOTIC DISORDER
     Dosage: ONE TABLET TAKEN EVERY DAY AT 6 PM
     Route: 048
  7. PRADAXA [Concomitant]
     Indication: ATRIAL FIBRILLATION
     Dosage: TABLET TAKEN EVERY DAY AT 6 PM AND 8 PM
     Route: 048
  8. GARDENAL [Concomitant]
     Indication: EPILEPSY
     Dosage: TABLET TAKEN EVERY DAY AT 6 PM
     Route: 048
  9. D-CURE [Concomitant]
     Indication: OSTEOPOROSIS
     Dosage: VIAL TAKEN ON THE 20TH OF EVERY MONTH
     Route: 048

REACTIONS (1)
  - Intestinal infarction [Unknown]
